FAERS Safety Report 25597241 (Version 1)
Quarter: 2025Q3

REPORT INFORMATION
  Report Type: Spontaneous
  Country: US (occurrence: US)
  Receive Date: 20250723
  Receipt Date: 20250723
  Transmission Date: 20251020
  Serious: Yes (Death, Life-Threatening, Hospitalization)
  Sender: AMGEN
  Company Number: US-AMGEN-USASP2025140913

PATIENT
  Age: 63 Year
  Sex: Female

DRUGS (5)
  1. PREDNISONE [Suspect]
     Active Substance: PREDNISONE
     Indication: Stevens-Johnson syndrome
     Dosage: 1 MILLIGRAM/KILOGRAM, QD
     Route: 065
  2. PREDNISONE [Suspect]
     Active Substance: PREDNISONE
     Indication: Toxic epidermal necrolysis
  3. CARBOPLATIN [Concomitant]
     Active Substance: CARBOPLATIN
  4. PACLITAXEL [Concomitant]
     Active Substance: PACLITAXEL
  5. PEMBROLIZUMAB [Concomitant]
     Active Substance: PEMBROLIZUMAB

REACTIONS (2)
  - Clostridial sepsis [Fatal]
  - Respiratory failure [Unknown]
